FAERS Safety Report 7226327-6 (Version None)
Quarter: 2011Q1

REPORT INFORMATION
  Report Type: 
  Country: None (occurrence: None)
  Receive Date: 20110114
  Receipt Date: 20110110
  Transmission Date: 20110831
  Serious: Yes (Life-Threatening, Other)
  Sender: FDA-Public Use
  Company Number: PHHY2010US76331

PATIENT
  Sex: Female

DRUGS (1)
  1. RECLAST [Suspect]
     Dosage: 5MG/100ML
     Dates: start: 20100609

REACTIONS (11)
  - NAUSEA [None]
  - HEADACHE [None]
  - FEELING ABNORMAL [None]
  - SUICIDAL IDEATION [None]
  - ABDOMINAL PAIN [None]
  - DRUG HYPERSENSITIVITY [None]
  - CHILLS [None]
  - MYALGIA [None]
  - MALAISE [None]
  - VOMITING [None]
  - INSOMNIA [None]
